FAERS Safety Report 9222226 (Version 1)
Quarter: 2013Q2

REPORT INFORMATION
  Report Type: Spontaneous
  Country: MX (occurrence: MX)
  Receive Date: 20130410
  Receipt Date: 20130410
  Transmission Date: 20140414
  Serious: Yes (Death, Hospitalization)
  Sender: FDA-Public Use
  Company Number: PHHY2013MX034078

PATIENT
  Age: 79 Year
  Sex: Male

DRUGS (1)
  1. CO-DIOVAN [Suspect]
     Indication: HYPERTENSION
     Dosage: 1 DF,(160MG VAL, 12.5MG HCT), DAILY
     Route: 048
     Dates: start: 2010, end: 201212

REACTIONS (4)
  - Renal disorder [Fatal]
  - Diabetes mellitus [Fatal]
  - Uraemic encephalopathy [Fatal]
  - Renal failure chronic [Fatal]
